FAERS Safety Report 25117992 (Version 3)
Quarter: 2025Q2

REPORT INFORMATION
  Report Type: Spontaneous
  Country: BE (occurrence: BE)
  Receive Date: 20250325
  Receipt Date: 20250425
  Transmission Date: 20250716
  Serious: Yes (Death, Life-Threatening, Hospitalization)
  Sender: PFIZER
  Company Number: None

PATIENT
  Age: 82 Year
  Sex: Male
  Weight: 70 kg

DRUGS (27)
  1. VFEND [Suspect]
     Active Substance: VORICONAZOLE
     Indication: Candida infection
     Dosage: 300 MG, 2X/DAY
     Route: 042
     Dates: start: 20250213, end: 20250220
  2. CEFTRIAXONE SODIUM [Concomitant]
     Active Substance: CEFTRIAXONE SODIUM
     Dosage: 2 G, 2X/DAY
     Dates: start: 20250210, end: 20250228
  3. METRONIDAZOLE [Concomitant]
     Active Substance: METRONIDAZOLE
     Dosage: 500 MG, 3X/DAY
     Dates: start: 20250224, end: 20250228
  4. TAFAMIDIS [Concomitant]
     Active Substance: TAFAMIDIS
     Dosage: AT THE MORNING
  5. ALLOPURINOL [Concomitant]
     Active Substance: ALLOPURINOL
     Dosage: AT THE AFTERNOON
  6. ASPIRIN [Concomitant]
     Active Substance: ASPIRIN
  7. FOLIC ACID [Concomitant]
     Active Substance: FOLIC ACID
  8. TRANEXAMIC ACID [Concomitant]
     Active Substance: TRANEXAMIC ACID
  9. ALIZAPRIDE [Concomitant]
     Active Substance: ALIZAPRIDE
  10. ALLOPURINOL [Concomitant]
     Active Substance: ALLOPURINOL
  11. AMIODARONE HYDROCHLORIDE [Concomitant]
     Active Substance: AMIODARONE HYDROCHLORIDE
  12. AMOXICILLIN\CLAVULANATE POTASSIUM [Concomitant]
     Active Substance: AMOXICILLIN\CLAVULANATE POTASSIUM
  13. BISOPROLOL [Concomitant]
     Active Substance: BISOPROLOL
  14. ESOMEPRAZOLE SODIUM [Concomitant]
     Active Substance: ESOMEPRAZOLE SODIUM
  15. FUROSEMIDE [Concomitant]
     Active Substance: FUROSEMIDE
  16. HALOPERIDOL [Concomitant]
     Active Substance: HALOPERIDOL
  17. INSULIN ASPART [Concomitant]
     Active Substance: INSULIN ASPART
  18. MAGNESIUM [Concomitant]
     Active Substance: MAGNESIUM
     Route: 048
  19. METAMIZOLE [Concomitant]
     Active Substance: METAMIZOLE
     Route: 048
  20. DAKTOZIN [Concomitant]
     Route: 048
  21. NADROPARIN [Concomitant]
     Active Substance: NADROPARIN
     Route: 048
  22. ACETAMINOPHEN [Concomitant]
     Active Substance: ACETAMINOPHEN
     Route: 048
  23. SODIUM PICOSULFATE [Concomitant]
     Active Substance: SODIUM PICOSULFATE
     Route: 048
  24. THIAMINE [Concomitant]
     Active Substance: THIAMINE
     Route: 048
  25. TRAMADOL [Concomitant]
     Active Substance: TRAMADOL
     Route: 048
  26. FLUIMUCIL [ACETYLCYSTEINE] [Concomitant]
     Route: 048
  27. PREGABALIN [Concomitant]
     Active Substance: PREGABALIN

REACTIONS (5)
  - Acute kidney injury [Fatal]
  - Blood creatinine increased [Fatal]
  - Hepatic enzyme increased [Fatal]
  - Drug level increased [Fatal]
  - Off label use [Unknown]

NARRATIVE: CASE EVENT DATE: 20250218
